FAERS Safety Report 16556826 (Version 1)
Quarter: 2019Q3

REPORT INFORMATION
  Report Type: Spontaneous
  Country: GB (occurrence: GB)
  Receive Date: 20190711
  Receipt Date: 20190711
  Transmission Date: 20191004
  Serious: Yes (Hospitalization)
  Sender: FDA-Public Use
  Company Number: GB-DEXPHARM-20190461

PATIENT
  Age: 79 Year
  Sex: Female

DRUGS (8)
  1. RAMIPRIL. [Suspect]
     Active Substance: RAMIPRIL
     Dosage: AT EVENING MEAL
     Route: 048
     Dates: end: 20190606
  2. ISOPHANE INSULIN [Concomitant]
     Active Substance: INSULIN NOS
     Dosage: AT EVENING MEAL
     Route: 058
  3. METFORMIN [Concomitant]
     Active Substance: METFORMIN HYDROCHLORIDE
     Dosage: AT EVENING MEAL
     Route: 048
  4. COCODAMOL [Concomitant]
     Active Substance: ACETAMINOPHEN\CODEINE PHOSPHATE
     Dosage: AT EVENING MEAL ; AS NECESSARY
     Route: 048
  5. OMEPRAZOLE. [Suspect]
     Active Substance: OMEPRAZOLE
     Route: 048
     Dates: end: 20190606
  6. BISOPROLOL [Concomitant]
     Active Substance: BISOPROLOL
     Route: 048
  7. SIMVASTATIN. [Concomitant]
     Active Substance: SIMVASTATIN
     Dosage: AT EVENING MEAL
     Route: 054
  8. AMLODIPINE [Suspect]
     Active Substance: AMLODIPINE BESYLATE
     Route: 048
     Dates: end: 20190606

REACTIONS (1)
  - Dizziness [Unknown]
